FAERS Safety Report 6152177-8 (Version None)
Quarter: 2009Q2

REPORT INFORMATION
  Report Type: 
  Country: None (occurrence: None)
  Receive Date: 20090410
  Receipt Date: 20090403
  Transmission Date: 20091009
  Serious: Yes (Life-Threatening, Other)
  Sender: FDA-Public Use
  Company Number: IT-BAXTER-2009BH005207

PATIENT
  Age: 32 Year
  Sex: Female

DRUGS (1)
  1. POTASSIUM CHLORIDE 0.15% IN DEXTROSE 5% [Suspect]
     Indication: DRUG USE FOR UNKNOWN INDICATION
     Route: 008

REACTIONS (9)
  - DRUG EXPOSURE DURING PREGNANCY [None]
  - HYPERTENSION [None]
  - MEDICATION ERROR [None]
  - PARAESTHESIA [None]
  - PARESIS [None]
  - PULMONARY OEDEMA [None]
  - RESPIRATORY FAILURE [None]
  - STRESS CARDIOMYOPATHY [None]
  - TACHYCARDIA [None]
